FAERS Safety Report 24247897 (Version 1)
Quarter: 2024Q3

REPORT INFORMATION
  Report Type: Spontaneous
  Country: US (occurrence: US)
  Receive Date: 20240826
  Receipt Date: 20240826
  Transmission Date: 20241017
  Serious: Yes (Hospitalization, Other)
  Sender: LUPIN
  Company Number: US-LUPIN PHARMACEUTICALS INC.-2024-08303

PATIENT

DRUGS (1)
  1. LEVOTHYROXINE SODIUM [Suspect]
     Active Substance: LEVOTHYROXINE SODIUM
     Indication: Product used for unknown indication
     Dosage: UNK
     Route: 065

REACTIONS (12)
  - Chest pain [Unknown]
  - Syncope [Unknown]
  - Headache [Unknown]
  - Diarrhoea [Unknown]
  - Mood altered [Unknown]
  - Pyrexia [Unknown]
  - Dyspnoea [Unknown]
  - Weight decreased [Unknown]
  - Alopecia [Unknown]
  - Adverse event [Unknown]
  - Illness [Unknown]
  - Loss of personal independence in daily activities [Unknown]
